FAERS Safety Report 10658837 (Version 2)
Quarter: 2014Q4

REPORT INFORMATION
  Report Type: Spontaneous
  Country: US (occurrence: US)
  Receive Date: 20141217
  Receipt Date: 20141217
  Transmission Date: 20150529
  Serious: Yes (Other)
  Sender: FDA-Public Use
  Company Number: US-ENDO PHARMACEUTICALS INC.-OPCR20140229

PATIENT

DRUGS (1)
  1. OPANA ER [Suspect]
     Active Substance: OXYMORPHONE HYDROCHLORIDE
     Indication: DRUG DIVERSION
     Dosage: 7.5, 10, 20, 30 MG
     Route: 065

REACTIONS (1)
  - Drug diversion [Unknown]
